FAERS Safety Report 4648023-1 (Version None)
Quarter: 2005Q2

REPORT INFORMATION
  Report Type: 
  Country: None (occurrence: None)
  Receive Date: 20050426
  Receipt Date: 20050413
  Transmission Date: 20051028
  Serious: Yes (Hospitalization)
  Sender: FDA-Public Use
  Company Number: S05-USA-01992-01

PATIENT
  Age: 60 Year
  Sex: Female

DRUGS (2)
  1. LEXAPRO [Suspect]
  2. REMERON [Concomitant]

REACTIONS (2)
  - POISONING DELIBERATE [None]
  - SUICIDE ATTEMPT [None]
